FAERS Safety Report 8080901-6 (Version None)
Quarter: 2012Q1

REPORT INFORMATION
  Report Type: 
  Country: None (occurrence: None)
  Receive Date: 20120130
  Receipt Date: 20120124
  Transmission Date: 20120608
  Serious: Yes (Other)
  Sender: FDA-Public Use
  Company Number: US-TEVA-319079USA

PATIENT
  Sex: Female

DRUGS (1)
  1. COPAXONE [Suspect]
     Indication: MULTIPLE SCLEROSIS
     Route: 058
     Dates: start: 20060301, end: 20111201

REACTIONS (6)
  - FLUSHING [None]
  - THROAT TIGHTNESS [None]
  - PALPITATIONS [None]
  - CHILLS [None]
  - NAUSEA [None]
  - ARTHRALGIA [None]
